FAERS Safety Report 23736180 (Version 1)
Quarter: 2024Q2

REPORT INFORMATION
  Report Type: Report from Study
  Country: US (occurrence: US)
  Receive Date: 20240412
  Receipt Date: 20240412
  Transmission Date: 20240716
  Serious: Yes (Death, Other)
  Sender: FDA-Public Use
  Company Number: US-TAKEDA-2024TUS034711

PATIENT
  Sex: Female

DRUGS (1)
  1. FRUQUINTINIB [Suspect]
     Active Substance: FRUQUINTINIB
     Indication: Breast cancer female
     Dosage: 3 MILLIGRAM
     Route: 048

REACTIONS (2)
  - Death [Fatal]
  - Off label use [Unknown]
